FAERS Safety Report 8021903-5 (Version None)
Quarter: 2011Q4

REPORT INFORMATION
  Report Type: 
  Country: None (occurrence: None)
  Receive Date: 20111229
  Receipt Date: 20111222
  Transmission Date: 20120403
  Serious: Yes (Hospitalization)
  Sender: FDA-Public Use
  Company Number: 1146781

PATIENT
  Age: 58 Year
  Sex: Male

DRUGS (7)
  1. LAMIVUDINE [Concomitant]
  2. LEVOLEUCOVORIN CALCIUM [Suspect]
     Indication: RECTAL CANCER STAGE IV
     Dosage: 434.20 MG, CYCLIC, INTRAVENOUS (NOT OTHERWISE SPECIFIED)
     Route: 042
     Dates: start: 20110913, end: 20111025
  3. (DEXAMETHASONE) [Concomitant]
  4. AVASTIN [Concomitant]
  5. ENALAPRIL MALEATE [Concomitant]
  6. FLUOROURACIL [Suspect]
     Indication: RECTAL CANCER STAGE IV
     Dosage: 2605 MG, CYCLIC, INTRAVENOUS (NOT OTHERWISE SPECIFIED)
     Route: 042
     Dates: start: 20110913, end: 20111025
  7. IRINOTECAN HYDROCHLORIDE [Suspect]
     Indication: RECTAL CANCER STAGE IV
     Dosage: 139 MG, CYCLIC,, INTRAVENOUS (NOT OTHERWISE SPECIFIED)
     Route: 042
     Dates: start: 20110913, end: 20111025

REACTIONS (4)
  - VOMITING [None]
  - RENAL FAILURE [None]
  - ELECTROLYTE IMBALANCE [None]
  - DIARRHOEA [None]
